FAERS Safety Report 10090103 (Version 1)
Quarter: 2014Q2

REPORT INFORMATION
  Report Type: Spontaneous
  Country: US (occurrence: US)
  Receive Date: 20140421
  Receipt Date: 20140421
  Transmission Date: 20141212
  Serious: No
  Sender: FDA-Public Use
  Company Number: US-PFIZER INC-2014107152

PATIENT
  Sex: Female

DRUGS (1)
  1. ADVIL [Suspect]
     Indication: TOOTHACHE
     Dosage: 400 MG (TAKING TWO TABLETS OF IBUPROFEN 200MG ONCE OR TWICE A DAY), AS NEEDED
     Route: 048
     Dates: end: 201404

REACTIONS (1)
  - Tinnitus [Recovered/Resolved]
